FAERS Safety Report 10404236 (Version 1)
Quarter: 2014Q1

REPORT INFORMATION
  Report Type: Spontaneous
  Country: US (occurrence: None)
  Receive Date: 20140128
  Receipt Date: 20140128
  Transmission Date: 20141002
  Serious: Yes (Other)
  Sender: FDA-Public Use
  Company Number: ADR-2013-02185

PATIENT
  Sex: Male

DRUGS (1)
  1. LIORESAL INTRATHECAL (BACLOFEN INJECTION) [Suspect]

REACTIONS (3)
  - Hallucination [None]
  - No therapeutic response [None]
  - Nephropathy [None]
